FAERS Safety Report 18407805 (Version 1)
Quarter: 2020Q4

REPORT INFORMATION
  Report Type: Spontaneous
  Country: US (occurrence: US)
  Receive Date: 20201021
  Receipt Date: 20201021
  Transmission Date: 20210114
  Serious: No
  Sender: FDA-Public Use
  Company Number: US-AMGEN INC.-USASP2020169038

PATIENT
  Age: 67 Year
  Sex: Female

DRUGS (3)
  1. COLLAGEN [Concomitant]
     Active Substance: COLLAGEN
     Indication: CONTUSION
  2. COLLAGEN [Concomitant]
     Active Substance: COLLAGEN
     Indication: SKIN ATROPHY
     Dosage: UNK
  3. AIMOVIG [Suspect]
     Active Substance: ERENUMAB-AOOE
     Indication: MIGRAINE
     Dosage: 70 MILLIGRAM
     Route: 065

REACTIONS (1)
  - Wrong technique in product usage process [Unknown]

NARRATIVE: CASE EVENT DATE: 20201016
